FAERS Safety Report 8121147-2 (Version None)
Quarter: 2012Q1

REPORT INFORMATION
  Report Type: 
  Country: None (occurrence: None)
  Receive Date: 20120203
  Receipt Date: 20120124
  Transmission Date: 20120608
  Serious: Yes (Other)
  Sender: FDA-Public Use
  Company Number: 1178180

PATIENT
  Age: 9 Year
  Sex: Male

DRUGS (5)
  1. CALCITRIOL [Suspect]
     Indication: OSTEOPOROSIS
     Dosage: 0.25 MCG TWICE DAILY
  2. CALCITRIOL [Suspect]
     Indication: SPINAL COMPRESSION FRACTURE
     Dosage: 0.25 MCG TWICE DAILY
  3. CALCIUM [Concomitant]
  4. PAMIDRONATE DISODIUM [Suspect]
     Indication: SPINAL COMPRESSION FRACTURE
     Dosage: 30 MG/M2, INTRAVENOUS DRIP
     Route: 041
  5. PAMIDRONATE DISODIUM [Suspect]
     Indication: OSTEOPOROSIS
     Dosage: 30 MG/M2, INTRAVENOUS DRIP
     Route: 041

REACTIONS (1)
  - NEPHROCALCINOSIS [None]
